FAERS Safety Report 8063979-5 (Version None)
Quarter: 2012Q1

REPORT INFORMATION
  Report Type: 
  Country: None (occurrence: None)
  Receive Date: 20120123
  Receipt Date: 20120120
  Transmission Date: 20120608
  Serious: Yes (Death)
  Sender: FDA-Public Use
  Company Number: JP-B.I. PHARMACEUTICALS,INC./RIDGEFIELD-2012-BP-00694NB

PATIENT
  Age: 85 Year
  Sex: Female

DRUGS (8)
  1. OSPAIN [Concomitant]
     Dosage: 200 MG
     Route: 048
  2. PREDNISOLONE [Concomitant]
     Dosage: 7.5 MG
     Route: 048
  3. PRADAXA [Suspect]
     Indication: ATRIAL FIBRILLATION
     Dosage: 220 MG
     Route: 048
     Dates: start: 20111126
  4. TREBIANOM [Concomitant]
     Dosage: 50 MG
     Route: 048
  5. ENALAPRIL MALEATE [Concomitant]
     Dosage: 5 MG
     Route: 048
  6. LASIX [Concomitant]
     Dosage: 80 MG
     Route: 048
  7. DIGOXIN [Concomitant]
     Dosage: 0.125 MG
     Route: 048
  8. ANPLAG [Concomitant]
     Dosage: 300 MG
     Route: 048

REACTIONS (1)
  - LOWER GASTROINTESTINAL HAEMORRHAGE [None]
